FAERS Safety Report 6425611-3 (Version None)
Quarter: 2009Q4

REPORT INFORMATION
  Report Type: 
  Country: None (occurrence: None)
  Receive Date: 20091016
  Receipt Date: 20080612
  Transmission Date: 20100525
  Serious: Yes (Hospitalization)
  Sender: FDA-Public Use
  Company Number: A03200802428

PATIENT
  Sex: Male

DRUGS (3)
  1. ELOXATIN [Suspect]
     Indication: COLON CANCER
     Dosage: INTRAVENOUS NOS
     Route: 042
  2. FLUOROURACIL [Suspect]
  3. LEUCOVORIN - UNKNOWN - UNIT DOSE : UNKNOWN [Suspect]

REACTIONS (2)
  - CHEST PAIN [None]
  - TACHYCARDIA [None]
